FAERS Safety Report 24245377 (Version 2)
Quarter: 2024Q4

REPORT INFORMATION
  Report Type: Spontaneous
  Country: CA (occurrence: CA)
  Receive Date: 20240824
  Receipt Date: 20241120
  Transmission Date: 20250115
  Serious: Yes (Other)
  Sender: ALEXION PHARMACEUTICALS
  Company Number: 2024A189298

PATIENT
  Age: 45 Year

DRUGS (26)
  1. ROSUVASTATIN [Suspect]
     Active Substance: ROSUVASTATIN
     Indication: Type IIa hyperlipidaemia
     Dosage: 1 UNK, QD
     Route: 065
  2. ROSUVASTATIN [Suspect]
     Active Substance: ROSUVASTATIN
     Dosage: 1 UNK, QD
  3. ROSUVASTATIN [Suspect]
     Active Substance: ROSUVASTATIN
     Dosage: 1 UNK, QD
     Route: 065
  4. ROSUVASTATIN [Suspect]
     Active Substance: ROSUVASTATIN
     Dosage: 1 UNK, QD
  5. ATORVASTATIN [Suspect]
     Active Substance: ATORVASTATIN
     Indication: Type IIa hyperlipidaemia
     Dosage: UNK UNK, QD
  6. ATORVASTATIN [Suspect]
     Active Substance: ATORVASTATIN
     Dosage: UNK UNK, QD
     Route: 065
  7. EVINACUMAB [Suspect]
     Active Substance: EVINACUMAB
     Indication: Type IIa hyperlipidaemia
  8. EVINACUMAB [Suspect]
     Active Substance: EVINACUMAB
  9. EVINACUMAB [Suspect]
     Active Substance: EVINACUMAB
  10. EVINACUMAB [Suspect]
     Active Substance: EVINACUMAB
  11. EVINACUMAB [Suspect]
     Active Substance: EVINACUMAB
     Dosage: 15 MG/KG
  12. EVINACUMAB [Suspect]
     Active Substance: EVINACUMAB
     Dosage: 15 MG/KG
  13. EVINACUMAB [Suspect]
     Active Substance: EVINACUMAB
     Dosage: 15 MG/KG
  14. EVINACUMAB [Suspect]
     Active Substance: EVINACUMAB
     Dosage: 15 MG/KG
  15. EZETIMIBE [Suspect]
     Active Substance: EZETIMIBE
     Indication: Type IIa hyperlipidaemia
     Dosage: 1 UNK, QD
     Route: 065
  16. EZETIMIBE [Suspect]
     Active Substance: EZETIMIBE
     Dosage: 1 UNK, QD
  17. EZETIMIBE [Suspect]
     Active Substance: EZETIMIBE
     Dosage: 1 UNK, QD
     Route: 065
  18. EZETIMIBE [Suspect]
     Active Substance: EZETIMIBE
     Dosage: 1 UNK, QD
  19. LOMITAPIDE [Suspect]
     Active Substance: LOMITAPIDE
     Indication: Type IIa hyperlipidaemia
     Dosage: 5 MILLIGRAM, UNK, FREQUENCY: UNK
     Route: 065
  20. LOMITAPIDE [Suspect]
     Active Substance: LOMITAPIDE
     Dosage: 5 MILLIGRAM, UNK, FREQUENCY: UNK
  21. LOMITAPIDE [Suspect]
     Active Substance: LOMITAPIDE
     Dosage: 5 MILLIGRAM, UNK, FREQUENCY: UNK
     Route: 065
  22. LOMITAPIDE [Suspect]
     Active Substance: LOMITAPIDE
     Dosage: 5 MILLIGRAM, UNK, FREQUENCY: UNK
  23. LOMITAPIDE [Suspect]
     Active Substance: LOMITAPIDE
     Dosage: 20 MILLIGRAM
     Route: 065
  24. LOMITAPIDE [Suspect]
     Active Substance: LOMITAPIDE
     Dosage: 20 MILLIGRAM
  25. LOMITAPIDE [Suspect]
     Active Substance: LOMITAPIDE
     Dosage: 20 MILLIGRAM
     Route: 065
  26. LOMITAPIDE [Suspect]
     Active Substance: LOMITAPIDE
     Dosage: 20 MILLIGRAM

REACTIONS (4)
  - Diarrhoea [Recovering/Resolving]
  - Hepatic steatosis [Recovering/Resolving]
  - International normalised ratio increased [Recovering/Resolving]
  - Nausea [Recovering/Resolving]
